FAERS Safety Report 9690101 (Version 2)
Quarter: 2013Q4

REPORT INFORMATION
  Report Type: Spontaneous
  Country: US (occurrence: US)
  Receive Date: 20131115
  Receipt Date: 20131220
  Transmission Date: 20140711
  Serious: No
  Sender: FDA-Public Use
  Company Number: US-PFIZER INC-2013322684

PATIENT
  Age: 82 Year
  Sex: Female

DRUGS (1)
  1. BACITRACIN [Suspect]
     Indication: WOUND
     Dosage: UNK; SEVERAL TIMES A DAY

REACTIONS (2)
  - Drug hypersensitivity [Unknown]
  - Pruritus [Unknown]
